FAERS Safety Report 7860938-X (Version None)
Quarter: 2011Q4

REPORT INFORMATION
  Report Type: 
  Country: None (occurrence: None)
  Receive Date: 20111027
  Receipt Date: 20111024
  Transmission Date: 20120403
  Serious: Yes (Other)
  Sender: FDA-Public Use
  Company Number: US-ABBOTT-11P-163-0867691-00

PATIENT

DRUGS (1)
  1. LUPRON DEPOT [Suspect]
     Indication: UTERINE LEIOMYOMA

REACTIONS (5)
  - OSTEOPOROSIS [None]
  - HYPOTHALAMO-PITUITARY DISORDER [None]
  - METABOLIC DISORDER [None]
  - INJURY [None]
  - BONE DENSITY DECREASED [None]
